FAERS Safety Report 5227805-1 (Version None)
Quarter: 2007Q1

REPORT INFORMATION
  Report Type: 
  Country: None (occurrence: None)
  Receive Date: 20070202
  Receipt Date: 20070122
  Transmission Date: 20070707
  Serious: Yes (Other)
  Sender: FDA-Public Use
  Company Number: JP-PFIZER INC-2007006862

PATIENT
  Age: 19 Year
  Sex: Male

DRUGS (5)
  1. GABAPEN [Suspect]
     Indication: EPILEPSY
     Dosage: DAILY DOSE:1200MG
     Route: 048
     Dates: start: 20061220, end: 20061227
  2. SELENICA-R [Concomitant]
     Route: 048
  3. TEGRETOL [Concomitant]
     Route: 048
  4. ZONISAMIDE [Concomitant]
     Route: 048
  5. MAGNESIUM OXIDE [Concomitant]
     Route: 048

REACTIONS (1)
  - TONIC CONVULSION [None]
